FAERS Safety Report 9377580 (Version 8)
Quarter: 2014Q3

REPORT INFORMATION
  Report Type: Spontaneous
  Country: US (occurrence: US)
  Receive Date: 20130701
  Receipt Date: 20140724
  Transmission Date: 20150326
  Serious: Yes (Hospitalization, Other)
  Sender: FDA-Public Use
  Company Number: US-009507513-1306USA014262

PATIENT
  Sex: Female
  Weight: 58.96 kg

DRUGS (5)
  1. CHONDROITIN SULFATE SODIUM (+) GLUCOSAMINE SULFATE [Concomitant]
     Dosage: 500 MG, UNK
     Dates: start: 1995
  2. CALCIUM (UNSPECIFIED) [Concomitant]
     Active Substance: CALCIUM
     Indication: OSTEOPOROSIS
     Dosage: 1000-1500 MG, UNK
     Dates: start: 1995
  3. ALENDRONATE SODIUM. [Suspect]
     Active Substance: ALENDRONATE SODIUM
     Dosage: 70 MG, UNK
     Route: 048
  4. FOSAMAX [Suspect]
     Active Substance: ALENDRONATE SODIUM
     Indication: OSTEOPOROSIS
     Dosage: 70 MG, QW
     Route: 048
     Dates: start: 20030107, end: 2011
  5. FOSAMAX [Suspect]
     Active Substance: ALENDRONATE SODIUM
     Dosage: 10 MG, UNK
     Route: 048
     Dates: start: 19981019

REACTIONS (15)
  - Femur fracture [Recovered/Resolved with Sequelae]
  - Cancer surgery [Unknown]
  - Intramedullary rod insertion [Unknown]
  - Polymyalgia rheumatica [Unknown]
  - Red blood cell sedimentation rate increased [Unknown]
  - Blood pressure increased [Unknown]
  - Insomnia [Not Recovered/Not Resolved]
  - Fat redistribution [Unknown]
  - Post procedural haemorrhage [Unknown]
  - Osteoarthritis [Unknown]
  - Pain in extremity [Recovered/Resolved]
  - Jaw disorder [Unknown]
  - Arthritis [Unknown]
  - Hypertension [Unknown]
  - Dyspepsia [Unknown]

NARRATIVE: CASE EVENT DATE: 19990301
